FAERS Safety Report 8893371 (Version 1)
Quarter: 2012Q4

REPORT INFORMATION
  Report Type: 
  Country: US (occurrence: US)
  Receive Date: 20121108
  Receipt Date: 20121108
  Transmission Date: 20130627
  Serious: No
  Sender: FDA-Public Use
  Company Number: US-009507513-1211USA002314

PATIENT
  Age: 9 Year
  Sex: Male

DRUGS (1)
  1. SINGULAIR [Suspect]
     Dosage: UNK
     Route: 048

REACTIONS (7)
  - Anger [Unknown]
  - Psychomotor hyperactivity [Unknown]
  - Attention deficit/hyperactivity disorder [Unknown]
  - Initial insomnia [Unknown]
  - Feeling hot [Unknown]
  - Scratch [Unknown]
  - Muscle twitching [Unknown]
